FAERS Safety Report 22119667 (Version 1)
Quarter: 2023Q1

REPORT INFORMATION
  Report Type: Other
  Country: US (occurrence: None)
  Receive Date: 20230321
  Receipt Date: 20230321
  Transmission Date: 20230418
  Serious: No
  Sender: FDA-Public Use
  Company Number: US-ROCHE-3088940

PATIENT
  Age: 68 Year
  Sex: Male

DRUGS (3)
  1. VISMODEGIB [Suspect]
     Active Substance: VISMODEGIB
     Indication: Basal cell carcinoma
     Route: 065
  2. CEMIPLIMAB [Concomitant]
     Active Substance: CEMIPLIMAB
  3. SONIDEGIB [Concomitant]
     Active Substance: SONIDEGIB

REACTIONS (1)
  - Drug intolerance [Unknown]
